FAERS Safety Report 4497490-5 (Version None)
Quarter: 2004Q4

REPORT INFORMATION
  Report Type: 
  Country: None (occurrence: None)
  Receive Date: 20041104
  Receipt Date: 20041022
  Transmission Date: 20050328
  Serious: Yes (Death, Hospitalization)
  Sender: FDA-Public Use
  Company Number: 200412879GDS

PATIENT
  Age: 71 Year
  Sex: Male

DRUGS (7)
  1. MOXIFLOXACIN HCL [Suspect]
     Indication: PHARYNGITIS
     Dosage: 400 MG, TOTAL DAILY, ORAL
     Route: 048
     Dates: start: 20040601, end: 20040101
  2. IBUPROFEN [Suspect]
     Indication: PHARYNGITIS
  3. HUMULIN N [Concomitant]
  4. TENORMIN [Concomitant]
  5. NORVASC [Concomitant]
  6. ADIRO [Concomitant]
  7. UNIKET [Concomitant]

REACTIONS (29)
  - AZOTAEMIA [None]
  - BILIARY DILATATION [None]
  - BILIARY NEOPLASM [None]
  - BLADDER DILATATION [None]
  - BLOOD CREATININE INCREASED [None]
  - BLOOD FIBRINOGEN INCREASED [None]
  - BLOOD IMMUNOGLOBULIN A INCREASED [None]
  - BLOOD IMMUNOGLOBULIN G INCREASED [None]
  - BODY TEMPERATURE DECREASED [None]
  - CHOLECYSTITIS [None]
  - CHOLESTASIS [None]
  - ERYTHEMA [None]
  - EXTRASYSTOLES [None]
  - GASTRIC DILATATION [None]
  - GASTRIC MUCOSAL LESION [None]
  - GASTRIC ULCER [None]
  - HEPATIC CIRRHOSIS [None]
  - HEPATIC ENCEPHALOPATHY [None]
  - HEPATIC FAILURE [None]
  - HEPATITIS CHOLESTATIC [None]
  - HEPATITIS TOXIC [None]
  - HEPATORENAL SYNDROME [None]
  - HILAR LYMPHADENOPATHY [None]
  - OEDEMA PERIPHERAL [None]
  - PAIN [None]
  - PORTAL HYPERTENSION [None]
  - RED BLOOD CELL SEDIMENTATION RATE INCREASED [None]
  - SCAR [None]
  - VARICOSE VEIN [None]
